FAERS Safety Report 23319004 (Version 1)
Quarter: 2023Q4

REPORT INFORMATION
  Report Type: Spontaneous
  Country: US (occurrence: US)
  Receive Date: 20231220
  Receipt Date: 20231220
  Transmission Date: 20240110
  Serious: No
  Sender: FDA-Public Use
  Company Number: US-Accord-368715

PATIENT
  Sex: Male

DRUGS (1)
  1. BUPROPION HYDROCHLORIDE [Suspect]
     Active Substance: BUPROPION HYDROCHLORIDE
     Indication: Seasonal affective disorder
     Dosage: STRENGTH: 150 MG, BY MOUTH ONCE DAILY, EXTENDED-RELEASE TABLET
     Dates: start: 20230505

REACTIONS (2)
  - Product odour abnormal [Unknown]
  - Product dose omission issue [Unknown]
